FAERS Safety Report 12644028 (Version 1)
Quarter: 2016Q3

REPORT INFORMATION
  Report Type: Spontaneous
  Country: IT (occurrence: IT)
  Receive Date: 20160811
  Receipt Date: 20160811
  Transmission Date: 20161109
  Serious: Yes (Death, Hospitalization)
  Sender: FDA-Public Use
  Company Number: IT-TEVA-683181ISR

PATIENT
  Age: 75 Year
  Sex: Female

DRUGS (1)
  1. LITHIUM. [Suspect]
     Active Substance: LITHIUM
     Indication: MAJOR DEPRESSION
     Route: 065

REACTIONS (5)
  - Accidental overdose [Fatal]
  - Nephrogenic diabetes insipidus [Unknown]
  - Osmotic demyelination syndrome [Unknown]
  - Toxicity to various agents [Fatal]
  - Cardio-respiratory arrest [Fatal]
